FAERS Safety Report 5250584-9 (Version None)
Quarter: 2007Q1

REPORT INFORMATION
  Report Type: 
  Country: None (occurrence: None)
  Receive Date: 20070228
  Receipt Date: 20060627
  Transmission Date: 20070707
  Serious: Yes (Other)
  Sender: FDA-Public Use
  Company Number: US-GLAXOSMITHKLINE-A0607587A

PATIENT
  Age: 54 Year
  Sex: Female
  Weight: 90.9 kg

DRUGS (6)
  1. LAMICTAL [Suspect]
     Indication: BIPOLAR DISORDER
     Dosage: 100MG PER DAY
     Route: 048
     Dates: start: 20060501, end: 20060501
  2. PAXIL [Concomitant]
  3. KLONOPIN [Concomitant]
  4. ADDERALL 10 [Concomitant]
  5. CLARITIN [Concomitant]
  6. MAXZIDE [Concomitant]

REACTIONS (2)
  - FACE OEDEMA [None]
  - OEDEMA PERIPHERAL [None]
